FAERS Safety Report 21798041 (Version 13)
Quarter: 2023Q1

REPORT INFORMATION
  Report Type: Spontaneous
  Country: US (occurrence: US)
  Receive Date: 20221230
  Receipt Date: 20230309
  Transmission Date: 20230418
  Serious: Yes (Hospitalization, Other)
  Sender: FDA-Public Use
  Company Number: US-UNITED THERAPEUTICS-UNT-2022-032174

PATIENT
  Age: 75 Year
  Sex: Female
  Weight: 44.535 kg

DRUGS (9)
  1. REMODULIN [Suspect]
     Active Substance: TREPROSTINIL
     Indication: Pulmonary arterial hypertension
     Dosage: 0.055 ?G/KG, CONTINUING
     Route: 041
  2. REMODULIN [Suspect]
     Active Substance: TREPROSTINIL
     Dosage: UNK, CONTINUING
     Route: 041
  3. REMODULIN [Suspect]
     Active Substance: TREPROSTINIL
     Dosage: 0.056 ?G/KG, CONTINUING
     Route: 041
  4. REMODULIN [Suspect]
     Active Substance: TREPROSTINIL
     Dosage: 0.057 ?G/KG, CONTINUING
     Route: 041
  5. REMODULIN [Suspect]
     Active Substance: TREPROSTINIL
     Dosage: 0.058 ?G/KG, CONTINUING
     Route: 041
  6. REMODULIN [Suspect]
     Active Substance: TREPROSTINIL
     Dosage: UNK, CONTINUING
     Route: 041
     Dates: start: 20210521
  7. GUAIFENESIN [Suspect]
     Active Substance: GUAIFENESIN
     Indication: Secretion discharge
     Dosage: UNK, (A COUPLE OF TIMES A DAY)
     Route: 065
  8. OXYGEN [Suspect]
     Active Substance: OXYGEN
     Indication: Product used for unknown indication
     Dosage: UNK, CONTINUING
     Route: 065
  9. ELIQUIS [Concomitant]
     Active Substance: APIXABAN
     Indication: Product used for unknown indication
     Dosage: UNK
     Route: 065

REACTIONS (17)
  - Pericarditis [Unknown]
  - Atrial fibrillation [Unknown]
  - Dyspnoea [Unknown]
  - Blood potassium decreased [Unknown]
  - Condition aggravated [Unknown]
  - Fluid retention [Unknown]
  - Dehydration [Unknown]
  - Pain [Unknown]
  - Insomnia [Unknown]
  - Malaise [Unknown]
  - Asthenia [Not Recovered/Not Resolved]
  - Bedridden [Unknown]
  - Device difficult to use [Unknown]
  - Eating disorder [Not Recovered/Not Resolved]
  - Epistaxis [Unknown]
  - Secretion discharge [Unknown]
  - Oxygen consumption increased [Unknown]

NARRATIVE: CASE EVENT DATE: 20221227
